FAERS Safety Report 25035330 (Version 1)
Quarter: 2025Q1

REPORT INFORMATION
  Report Type: Spontaneous
  Country: JP (occurrence: JP)
  Receive Date: 20250304
  Receipt Date: 20250304
  Transmission Date: 20250409
  Serious: Yes (Other)
  Sender: AMGEN
  Company Number: JP-AMGEN-JPNSP2025023050

PATIENT
  Age: 77 Year
  Sex: Female

DRUGS (24)
  1. EVENITY [Suspect]
     Active Substance: ROMOSOZUMAB-AQQG
     Indication: Osteoporosis
     Dosage: 210 MILLIGRAM, QMO
     Route: 058
     Dates: start: 20200811, end: 20210706
  2. LEVOTHYROXINE [Concomitant]
     Active Substance: LEVOTHYROXINE
  3. AZILSARTAN KAMEDOXOMIL [Concomitant]
     Active Substance: AZILSARTAN KAMEDOXOMIL
  4. AMLODIPINE [Concomitant]
     Active Substance: AMLODIPINE BESYLATE
  5. AMITIZA [Concomitant]
     Active Substance: LUBIPROSTONE
  6. VONOPRAZAN FUMARATE [Concomitant]
     Active Substance: VONOPRAZAN FUMARATE
  7. Adona [Concomitant]
  8. VIBEGRON [Concomitant]
     Active Substance: VIBEGRON
  9. MAGNESIUM OXIDE [Concomitant]
     Active Substance: MAGNESIUM OXIDE
  10. SENNOSIDES [Concomitant]
     Active Substance: SENNOSIDES
  11. LIMAPROST [Concomitant]
     Active Substance: LIMAPROST
  12. METHYLCOBALAMIN [Concomitant]
     Active Substance: METHYLCOBALAMIN
  13. ELDECALCITOL [Concomitant]
     Active Substance: ELDECALCITOL
  14. DIQUAFOSOL TETRASODIUM [Concomitant]
     Active Substance: DIQUAFOSOL TETRASODIUM
  15. Tapros [Concomitant]
  16. PLAVIX [Concomitant]
     Active Substance: CLOPIDOGREL BISULFATE
  17. LOXOPROFEN SODIUM [Concomitant]
     Active Substance: LOXOPROFEN SODIUM
  18. AZITHROMYCIN [Concomitant]
     Active Substance: AZITHROMYCIN
  19. HERBALS [Concomitant]
     Active Substance: HERBALS
  20. ACETAMINOPHEN\TRAMADOL HYDROCHLORIDE [Concomitant]
     Active Substance: ACETAMINOPHEN\TRAMADOL HYDROCHLORIDE
  21. METOCLOPRAMIDE [Concomitant]
     Active Substance: METOCLOPRAMIDE
  22. XYZAL [Concomitant]
     Active Substance: LEVOCETIRIZINE DIHYDROCHLORIDE
  23. CLOBETASOL [Concomitant]
     Active Substance: CLOBETASOL
  24. CALCIUM CHLORIDE ANHYDROUS\POTASSIUM CHLORIDE\SODIUM CHLORIDE\SODIUM L [Concomitant]
     Active Substance: CALCIUM CHLORIDE ANHYDROUS\POTASSIUM CHLORIDE\SODIUM CHLORIDE\SODIUM LACTATE

REACTIONS (3)
  - Spinal compression fracture [Unknown]
  - Therapeutic product effect incomplete [Unknown]
  - Arthralgia [Unknown]

NARRATIVE: CASE EVENT DATE: 20241224
